FAERS Safety Report 20073053 (Version 2)
Quarter: 2021Q4

REPORT INFORMATION
  Report Type: Spontaneous
  Country: KR (occurrence: None)
  Receive Date: 20211116
  Receipt Date: 20211129
  Transmission Date: 20220303
  Serious: Yes (Other)
  Sender: FDA-Public Use
  Company Number: KR-ROCHE-2949994

PATIENT
  Age: 26 Year
  Sex: Male

DRUGS (17)
  1. AVASTIN [Suspect]
     Active Substance: BEVACIZUMAB
     Indication: Chorioretinopathy
     Route: 050
     Dates: start: 20160105
  2. ACETAZOLAMIDE [Suspect]
     Active Substance: ACETAZOLAMIDE
     Indication: Product used for unknown indication
     Route: 065
     Dates: start: 20160105
  3. SYNTHROID [Suspect]
     Active Substance: LEVOTHYROXINE SODIUM
     Indication: Product used for unknown indication
     Route: 065
     Dates: start: 20160212
  4. SYNTHROID [Suspect]
     Active Substance: LEVOTHYROXINE SODIUM
     Route: 065
     Dates: start: 20160321
  5. SYNTHROID [Suspect]
     Active Substance: LEVOTHYROXINE SODIUM
     Route: 065
     Dates: start: 20160401
  6. SYNTHROID [Suspect]
     Active Substance: LEVOTHYROXINE SODIUM
     Route: 065
     Dates: start: 20160514
  7. SYNTHROID [Suspect]
     Active Substance: LEVOTHYROXINE SODIUM
     Route: 065
     Dates: start: 20160615
  8. SYNTHROID [Suspect]
     Active Substance: LEVOTHYROXINE SODIUM
     Route: 065
     Dates: start: 20160810
  9. SYNTHROID [Suspect]
     Active Substance: LEVOTHYROXINE SODIUM
     Route: 065
     Dates: start: 20160812
  10. SYNTHROID [Suspect]
     Active Substance: LEVOTHYROXINE SODIUM
     Route: 065
     Dates: start: 20160812
  11. SYNTHROID [Suspect]
     Active Substance: LEVOTHYROXINE SODIUM
     Route: 065
     Dates: start: 20161021
  12. SYNTHROID [Suspect]
     Active Substance: LEVOTHYROXINE SODIUM
     Route: 065
     Dates: start: 20161111
  13. SYNTHROID [Suspect]
     Active Substance: LEVOTHYROXINE SODIUM
     Route: 065
     Dates: start: 20151117
  14. AMOXICILLIN [Suspect]
     Active Substance: AMOXICILLIN
     Indication: Product used for unknown indication
     Route: 065
     Dates: start: 20160530
  15. CLARITHROMYCIN [Suspect]
     Active Substance: CLARITHROMYCIN
     Indication: Product used for unknown indication
     Route: 065
  16. ROXITHROMYCIN [Suspect]
     Active Substance: ROXITHROMYCIN
     Indication: Product used for unknown indication
     Route: 065
  17. ENTELON [Concomitant]
     Route: 048
     Dates: start: 20160615, end: 20160615

REACTIONS (12)
  - Retinal detachment [Unknown]
  - Chorioretinopathy [Recovered/Resolved]
  - Nasopharyngitis [Recovered/Resolved]
  - Otitis externa [Unknown]
  - Chorioretinopathy [Recovered/Resolved]
  - Off label use [Unknown]
  - Drug ineffective [Unknown]
  - Intentional product misuse [Unknown]
  - Chorioretinopathy [Unknown]
  - Ill-defined disorder [Unknown]
  - Ill-defined disorder [Unknown]
  - Product use issue [Unknown]

NARRATIVE: CASE EVENT DATE: 20160120
